FAERS Safety Report 19134537 (Version 4)
Quarter: 2021Q4

REPORT INFORMATION
  Report Type: Report from Study
  Country: EG (occurrence: EG)
  Receive Date: 20210414
  Receipt Date: 20211006
  Transmission Date: 20220303
  Serious: Yes (Other)
  Sender: FDA-Public Use
  Company Number: NVSC2021EG078240

PATIENT
  Age: 38 Year
  Sex: Female

DRUGS (12)
  1. COSENTYX [Suspect]
     Active Substance: SECUKINUMAB
     Indication: Ankylosing spondylitis
     Dosage: 150 MG, QW
     Route: 058
     Dates: start: 20210311
  2. COSENTYX [Suspect]
     Active Substance: SECUKINUMAB
     Dosage: 150 MG, Q2W FOR 1 MONTH
     Route: 065
  3. COSENTYX [Suspect]
     Active Substance: SECUKINUMAB
     Dosage: 150 MG, QMO
     Route: 065
  4. COSENTYX [Suspect]
     Active Substance: SECUKINUMAB
     Dosage: 150 MG, QMO
     Route: 065
     Dates: start: 20210314
  5. COSENTYX [Suspect]
     Active Substance: SECUKINUMAB
     Dosage: 1 DF, QMO
     Route: 058
     Dates: start: 20210311, end: 202108
  6. PLAQUENIL [Concomitant]
     Active Substance: HYDROXYCHLOROQUINE SULFATE
     Indication: Product used for unknown indication
     Dosage: 200 MG, BID
     Route: 065
     Dates: start: 20200915
  7. METHOTREXATE [Concomitant]
     Active Substance: METHOTREXATE
     Indication: Product used for unknown indication
     Dosage: 70 IU, QW
     Route: 058
  8. METHOTREXATE [Concomitant]
     Active Substance: METHOTREXATE
     Dosage: 80 IU, QW
     Route: 058
  9. METHOTREXATE [Concomitant]
     Active Substance: METHOTREXATE
     Dosage: 90 IU, QW
     Route: 058
  10. OSTEOCARE [Concomitant]
     Active Substance: CALCIUM\CHOLECALCIFEROL\MAGNESIUM\ZINC
     Indication: Ankylosing spondylitis
     Dosage: 1 DF, QD
     Route: 048
     Dates: start: 202008
  11. OSTEOCARE [Concomitant]
     Active Substance: CALCIUM\CHOLECALCIFEROL\MAGNESIUM\ZINC
     Dosage: UNK UNK, QD
     Route: 065
     Dates: start: 202009
  12. FOLIC ACID [Concomitant]
     Active Substance: FOLIC ACID
     Indication: Product used for unknown indication
     Dosage: 5 MG, QD
     Route: 065

REACTIONS (6)
  - Ankylosing spondylitis [Not Recovered/Not Resolved]
  - Hypotension [Not Recovered/Not Resolved]
  - Headache [Unknown]
  - Dizziness [Unknown]
  - Product use issue [Unknown]
  - Drug ineffective [Not Recovered/Not Resolved]

NARRATIVE: CASE EVENT DATE: 20210301
